FAERS Safety Report 18599997 (Version 2)
Quarter: 2021Q1

REPORT INFORMATION
  Report Type: Spontaneous
  Country: US (occurrence: US)
  Receive Date: 20201210
  Receipt Date: 20210205
  Transmission Date: 20210419
  Serious: Yes (Other)
  Sender: FDA-Public Use
  Company Number: US-LUPIN PHARMACEUTICALS INC.-2020-09926

PATIENT
  Age: 14 Year
  Sex: Female

DRUGS (4)
  1. CLOMIPRAMINE [Suspect]
     Active Substance: CLOMIPRAMINE
     Indication: TRICHOTILLOMANIA
     Dosage: UPTO 150 MILLIGRAM, QD
     Route: 065
  2. MEMANTINE. [Suspect]
     Active Substance: MEMANTINE
     Indication: TRICHOTILLOMANIA
     Dosage: 10 MILLIGRAM, QD (EVERY MORNING)
     Route: 065
  3. MEMANTINE. [Suspect]
     Active Substance: MEMANTINE
     Dosage: UNK
     Route: 065
  4. FLUOXETINE [Suspect]
     Active Substance: FLUOXETINE HYDROCHLORIDE
     Indication: TRICHOTILLOMANIA
     Dosage: 60 MILLIGRAM, QD
     Route: 065

REACTIONS (3)
  - Drug effective for unapproved indication [Unknown]
  - Drug ineffective [Unknown]
  - Off label use [Unknown]
